FAERS Safety Report 6243442-4 (Version None)
Quarter: 2009Q2

REPORT INFORMATION
  Report Type: 
  Country: None (occurrence: None)
  Receive Date: 20090624
  Receipt Date: 20090612
  Transmission Date: 20091009
  Serious: Yes (Other)
  Sender: FDA-Public Use
  Company Number: US-ELI_LILLY_AND_COMPANY-US200705000315

PATIENT
  Sex: Female
  Weight: 190.48 kg

DRUGS (6)
  1. ZYPREXA [Suspect]
     Indication: PARANOIA
     Dosage: 7.5 MG, DAILY (1/D)
     Route: 048
     Dates: start: 20010101
  2. ZYPREXA [Suspect]
     Dosage: 15 MG, DAILY (1/D)
     Route: 048
  3. ZYPREXA [Suspect]
     Dosage: 10 MG, UNK
     Dates: start: 20060101
  4. ZYPREXA [Suspect]
     Dosage: 1 D/F, UNK
  5. HYDROCHLOROTHIAZIDE [Concomitant]
     Indication: BLOOD PRESSURE
     Dosage: 12.5 MG, UNK
  6. CENTRUM SILVER [Concomitant]

REACTIONS (10)
  - DIABETES MELLITUS [None]
  - DIZZINESS [None]
  - DRUG INEFFECTIVE [None]
  - FLUID RETENTION [None]
  - HYPERTENSION [None]
  - INCREASED APPETITE [None]
  - MUSCLE ATROPHY [None]
  - NERVOUSNESS [None]
  - OFF LABEL USE [None]
  - WEIGHT INCREASED [None]
